FAERS Safety Report 8358275-2 (Version None)
Quarter: 2012Q2

REPORT INFORMATION
  Report Type: 
  Country: None (occurrence: None)
  Receive Date: 20120514
  Receipt Date: 20120507
  Transmission Date: 20120825
  Serious: Yes (Hospitalization)
  Sender: FDA-Public Use
  Company Number: BR-ROCHE-1062755

PATIENT
  Sex: Male
  Weight: 83.8 kg

DRUGS (9)
  1. SIMVASTATIN [Concomitant]
  2. VITAMIN B-12 [Concomitant]
     Dates: end: 20120505
  3. PRILOSEC [Concomitant]
  4. NPH INSULIN [Concomitant]
  5. MARIVARIN [Concomitant]
     Dates: end: 20120505
  6. CALCIUM CARBONATE [Concomitant]
  7. MIRCERA [Suspect]
     Indication: NEPHROGENIC ANAEMIA
     Dosage: LAST DOSE PRIOR TO SAE ON 22/MAR/2012
     Route: 058
     Dates: start: 20100223
  8. ASPIRIN [Concomitant]
  9. CLOPIDOGREL [Concomitant]

REACTIONS (1)
  - CEREBROVASCULAR ACCIDENT [None]
